FAERS Safety Report 14700454 (Version 2)
Quarter: 2018Q2

REPORT INFORMATION
  Report Type: Spontaneous
  Country: MX (occurrence: MX)
  Receive Date: 20180330
  Receipt Date: 20180406
  Transmission Date: 20180711
  Serious: Yes (Other)
  Sender: FDA-Public Use
  Company Number: MX-PFIZER INC-2018125732

PATIENT
  Age: 61 Year
  Sex: Male
  Weight: 80 kg

DRUGS (2)
  1. LIPITOR [Suspect]
     Active Substance: ATORVASTATIN CALCIUM
     Indication: CEREBRAL MICROANGIOPATHY
     Dosage: 40 MG, 1X/DAY
     Route: 048
     Dates: start: 201712
  2. ATORVASTATIN CALCIUM. [Suspect]
     Active Substance: ATORVASTATIN CALCIUM
     Indication: CEREBRAL MICROANGIOPATHY
     Dosage: 40 MG, 1X/DAY
     Route: 048

REACTIONS (15)
  - Headache [Unknown]
  - Fatigue [Unknown]
  - Balance disorder [Unknown]
  - Cardiac murmur [Unknown]
  - Memory impairment [Unknown]
  - Angina pectoris [Unknown]
  - Cerebral atrophy [Unknown]
  - Dizziness [Unknown]
  - Product use in unapproved indication [Unknown]
  - Tremor [Unknown]
  - Transient ischaemic attack [Unknown]
  - Disorientation [Unknown]
  - Mobility decreased [Unknown]
  - Vasospasm [Unknown]
  - Cerebrovascular accident [Unknown]
